FAERS Safety Report 5527365-1 (Version None)
Quarter: 2007Q4

REPORT INFORMATION
  Report Type: 
  Country: None (occurrence: None)
  Receive Date: 20071123
  Receipt Date: 20071109
  Transmission Date: 20080405
  Serious: Yes (Hospitalization)
  Sender: FDA-Public Use
  Company Number: 2007PV033290

PATIENT
  Age: 54 Year
  Sex: Female
  Weight: 68.0396 kg

DRUGS (11)
  1. SYMLIN [Suspect]
     Indication: TYPE 1 DIABETES MELLITUS
     Dosage: 45 MCG;TID;SC;  30 MCG; TID; SC;  15 MCG; TID; SC
     Route: 058
     Dates: start: 20070728, end: 20070730
  2. SYMLIN [Suspect]
     Indication: TYPE 1 DIABETES MELLITUS
     Dosage: 45 MCG;TID;SC;  30 MCG; TID; SC;  15 MCG; TID; SC
     Route: 058
     Dates: start: 20070731, end: 20070801
  3. LANTUS [Concomitant]
  4. NOVOLOG [Concomitant]
  5. PRILOSEC [Concomitant]
  6. FOLIC ACID [Concomitant]
  7. METHOTREXATE [Concomitant]
  8. ZYRTEC [Concomitant]
  9. CALTRATE [Concomitant]
  10. VITAMINS [Concomitant]
  11. SINGULAIR [Concomitant]

REACTIONS (1)
  - PANCREATITIS [None]
